FAERS Safety Report 5705269-9 (Version None)
Quarter: 2008Q2

REPORT INFORMATION
  Report Type: 
  Country: None (occurrence: None)
  Receive Date: 20080410
  Receipt Date: 20080328
  Transmission Date: 20081010
  Serious: Yes (Other)
  Sender: FDA-Public Use
  Company Number: 230001M08ITA

PATIENT
  Age: 35 Year
  Sex: Female

DRUGS (2)
  1. REBIF [Suspect]
     Indication: MULTIPLE SCLEROSIS
     Dosage: 44 MCG, SUBCUTANEOUS
     Route: 058
     Dates: start: 20060925, end: 20080218
  2. VELAMOX (AMOXICILLIN /00249601/) [Concomitant]

REACTIONS (4)
  - BLINDNESS UNILATERAL [None]
  - CANDIDIASIS [None]
  - CHORIORETINITIS [None]
  - NECROTISING RETINITIS [None]
